FAERS Safety Report 10491667 (Version 2)
Quarter: 2014Q4

REPORT INFORMATION
  Report Type: Spontaneous
  Country: US (occurrence: US)
  Receive Date: 20141002
  Receipt Date: 20141002
  Transmission Date: 20150528
  Serious: No
  Sender: FDA-Public Use
  Company Number: US-GLAXOSMITHKLINE-A1057485A

PATIENT
  Age: 78 Year
  Sex: Male
  Weight: 102.9 kg

DRUGS (8)
  1. ADVAIR HFA [Suspect]
     Active Substance: FLUTICASONE PROPIONATE\SALMETEROL XINAFOATE
     Indication: ASTHMA
     Dosage: 1PUFF TWICE PER DAY
     Route: 055
     Dates: start: 1999
  2. RAMIPRIL. [Concomitant]
     Active Substance: RAMIPRIL
  3. HCTZ [Concomitant]
     Active Substance: HYDROCHLOROTHIAZIDE
  4. MONTELUKAST [Concomitant]
     Active Substance: MONTELUKAST SODIUM
  5. WATER PILL [Concomitant]
     Active Substance: UNSPECIFIED INGREDIENT
  6. COUMADIN [Concomitant]
     Active Substance: WARFARIN SODIUM
  7. VITAMINS [Concomitant]
     Active Substance: VITAMINS
  8. LIPITOR [Concomitant]
     Active Substance: ATORVASTATIN CALCIUM

REACTIONS (7)
  - Skin burning sensation [Unknown]
  - Oral mucosal discolouration [Unknown]
  - Dysgeusia [Unknown]
  - Oral discomfort [Recovered/Resolved]
  - Polyp [Unknown]
  - Throat irritation [Unknown]
  - Product quality issue [Unknown]

NARRATIVE: CASE EVENT DATE: 20140118
